FAERS Safety Report 7583549-2 (Version None)
Quarter: 2011Q2

REPORT INFORMATION
  Report Type: 
  Country: None (occurrence: None)
  Receive Date: 20110630
  Receipt Date: 20110623
  Transmission Date: 20111010
  Serious: Yes (Hospitalization)
  Sender: FDA-Public Use
  Company Number: CO-B.I. PHARMACEUTICALS,INC./RIDGEFIELD-2011-RA-00203RA

PATIENT
  Sex: Female
  Weight: 65 kg

DRUGS (2)
  1. LEVOTHYROXINE SODIUM [Concomitant]
     Indication: HYPOTHYROIDISM
     Dosage: 100 MG
     Route: 048
     Dates: start: 20080605
  2. MIRAPEX [Suspect]
     Indication: PARKINSON'S DISEASE
     Dosage: ONE TABLET DAILY
     Route: 048
     Dates: start: 20110201, end: 20110519

REACTIONS (6)
  - HYPERHIDROSIS [None]
  - PALLOR [None]
  - CHEST DISCOMFORT [None]
  - CARDIOVASCULAR DISORDER [None]
  - VERTIGO [None]
  - PALPITATIONS [None]
